FAERS Safety Report 8889649 (Version 1)
Quarter: 2012Q4

REPORT INFORMATION
  Report Type: 
  Country: BR (occurrence: BR)
  Receive Date: 20121107
  Receipt Date: 20121107
  Transmission Date: 20130627
  Serious: Yes (Hospitalization, Other)
  Sender: FDA-Public Use
  Company Number: BR-ELI_LILLY_AND_COMPANY-BR201210008990

PATIENT
  Sex: Female
  Weight: 57 kg

DRUGS (7)
  1. FORTEO [Suspect]
     Indication: OSTEOPOROSIS
     Dosage: 20 ug, qd
     Route: 058
     Dates: start: 201102, end: 201209
  2. LASIX [Concomitant]
     Indication: RENAL DISORDER
     Dosage: UNK, unknown
     Route: 065
  3. DIGOXINA [Concomitant]
     Indication: CARDIAC DISORDER
     Dosage: 2.5 mg, unknown
     Route: 065
  4. CONCOR [Concomitant]
     Indication: CARDIAC DISORDER
     Dosage: UNK, unknown
     Route: 065
  5. ATACAND [Concomitant]
     Dosage: UNK, unknown
     Route: 065
  6. ASPIRINA [Concomitant]
     Dosage: UNK, unknown
     Route: 065
  7. INSULIN [Concomitant]
     Dosage: 16 IU, UNK
     Route: 065

REACTIONS (4)
  - Fall [Recovered/Resolved]
  - Convulsion [Recovered/Resolved]
  - Dementia Alzheimer^s type [Recovered/Resolved]
  - Blood pressure decreased [Recovered/Resolved]
